FAERS Safety Report 8011428-5 (Version None)
Quarter: 2011Q4

REPORT INFORMATION
  Report Type: 
  Country: None (occurrence: None)
  Receive Date: 20111228
  Receipt Date: 20111219
  Transmission Date: 20120403
  Serious: Yes (Death)
  Sender: FDA-Public Use
  Company Number: US-PFIZER INC-2011308895

PATIENT
  Age: 47 Year
  Sex: Female

DRUGS (4)
  1. HYDROXYZINE [Suspect]
  2. ACETAMINOPHEN [Suspect]
  3. IBUPROFEN [Suspect]
  4. PHENOTHIAZINE [Suspect]

REACTIONS (3)
  - COMPLETED SUICIDE [None]
  - CARDIAC ARREST [None]
  - RESPIRATORY ARREST [None]
